FAERS Safety Report 7527458-3 (Version None)
Quarter: 2011Q2

REPORT INFORMATION
  Report Type: 
  Country: None (occurrence: None)
  Receive Date: 20110512
  Receipt Date: 20110329
  Transmission Date: 20111010
  Serious: Yes (Other)
  Sender: FDA-Public Use
  Company Number: 1000018676

PATIENT
  Age: 22 Year
  Sex: Female
  Weight: 76.2 kg

DRUGS (2)
  1. SAVELLA [Suspect]
     Indication: FIBROMYALGIA
     Dosage: 12.5 MG (12.5 MG), ORAL
     Route: 048
     Dates: start: 20101027, end: 20101101
  2. KLONOPIN (CLONAZEPAM) (CLONAZEPAM) [Concomitant]

REACTIONS (1)
  - SUICIDAL IDEATION [None]
